FAERS Safety Report 8885841 (Version 1)
Quarter: 2012Q4

REPORT INFORMATION
  Report Type: Report from Study
  Country: FR (occurrence: FR)
  Receive Date: 20121102
  Receipt Date: 20121102
  Transmission Date: 20130627
  Serious: Yes (Other)
  Sender: FDA-Public Use
  Company Number: FR-MPIJNJ-2012-07530

PATIENT

DRUGS (7)
  1. VELCADE [Suspect]
     Indication: MULTIPLE MYELOMA
     Dosage: 1.9 mg, UNK
     Route: 065
     Dates: start: 20110927, end: 20120427
  2. REVLIMID [Suspect]
     Indication: MULTIPLE MYELOMA
     Dosage: 15 mg, UNK
     Route: 065
     Dates: start: 20110927, end: 20121023
  3. DEXAMETHASONE [Suspect]
     Indication: MULTIPLE MYELOMA
     Dosage: 10 mg, UNK
     Route: 065
     Dates: start: 20110927, end: 20120428
  4. ASPIRINE [Concomitant]
     Indication: THROMBOSIS PROPHYLAXIS
     Dosage: 100 mg, UNK
     Route: 048
     Dates: start: 201207
  5. ZELITREX                           /01269701/ [Concomitant]
     Indication: ANTIVIRAL PROPHYLAXIS
     Dosage: UNK
  6. ZOMETA [Concomitant]
     Indication: MULTIPLE MYELOMA
     Dosage: UNK
  7. BICARBONATE [Concomitant]
     Indication: FUNGAL INFECTION
     Dosage: UNK

REACTIONS (2)
  - Breast cancer [Not Recovered/Not Resolved]
  - Second primary malignancy [None]
